FAERS Safety Report 25700360 (Version 4)
Quarter: 2025Q3

REPORT INFORMATION
  Report Type: Spontaneous
  Country: US (occurrence: US)
  Receive Date: 20250819
  Receipt Date: 20250916
  Transmission Date: 20251020
  Serious: Yes (Hospitalization, Other)
  Sender: ARDELYX
  Company Number: US-ARDELYX-2025ARDX006173

PATIENT
  Sex: Female

DRUGS (7)
  1. IBSRELA [Suspect]
     Active Substance: TENAPANOR HYDROCHLORIDE
     Indication: Constipation
     Route: 065
     Dates: start: 202506, end: 202507
  2. IBSRELA [Suspect]
     Active Substance: TENAPANOR HYDROCHLORIDE
     Indication: Irritable bowel syndrome
     Route: 048
  3. IRBESARTAN [Concomitant]
     Active Substance: IRBESARTAN
     Indication: Product used for unknown indication
     Route: 065
  4. ATORVASTATIN [Concomitant]
     Active Substance: ATORVASTATIN
     Indication: Product used for unknown indication
     Route: 065
  5. VITAMIN D [Concomitant]
     Active Substance: VITAMIN D NOS
     Indication: Product used for unknown indication
     Route: 065
  6. MAGNESIUM [Concomitant]
     Active Substance: MAGNESIUM
     Indication: Product used for unknown indication
     Route: 065
  7. VITAMINS [Concomitant]
     Active Substance: VITAMINS
     Indication: Product used for unknown indication
     Route: 065

REACTIONS (9)
  - Fall [Recovering/Resolving]
  - Loss of consciousness [Recovering/Resolving]
  - Concussion [Recovering/Resolving]
  - Foot fracture [Recovering/Resolving]
  - Clavicle fracture [Recovering/Resolving]
  - Gait disturbance [Recovering/Resolving]
  - Dizziness [Recovering/Resolving]
  - Cardiac monitoring [Unknown]
  - Product use issue [Unknown]

NARRATIVE: CASE EVENT DATE: 20250101
